FAERS Safety Report 7377904-3 (Version None)
Quarter: 2011Q1

REPORT INFORMATION
  Report Type: 
  Country: None (occurrence: None)
  Receive Date: 20110328
  Receipt Date: 20110321
  Transmission Date: 20110831
  Serious: Yes (Other)
  Sender: FDA-Public Use
  Company Number: US-JNJFOC-20101001538

PATIENT
  Sex: Male

DRUGS (3)
  1. LEVAQUIN [Suspect]
     Indication: COUGH
     Route: 048
  2. LEVAQUIN [Suspect]
     Indication: BRONCHITIS
     Route: 048
  3. LEVAQUIN [Suspect]
     Indication: SINUSITIS
     Route: 065

REACTIONS (5)
  - TENDON RUPTURE [None]
  - DRUG INEFFECTIVE [None]
  - LIGAMENT RUPTURE [None]
  - THROMBOPHLEBITIS SUPERFICIAL [None]
  - TENDONITIS [None]
